FAERS Safety Report 8593256-5 (Version None)
Quarter: 2012Q3

REPORT INFORMATION
  Report Type: 
  Country: None (occurrence: None)
  Receive Date: 20120814
  Receipt Date: 20120806
  Transmission Date: 20120928
  Serious: Yes (Hospitalization, Other)
  Sender: FDA-Public Use
  Company Number: JP-VERTEX PHARMACEUTICALS INC.-AE-2012-007785

PATIENT
  Age: 62 Year
  Sex: Male

DRUGS (13)
  1. PROMAC [Concomitant]
     Route: 048
  2. RIBAVIRIN [Concomitant]
     Route: 048
     Dates: start: 20120523, end: 20120612
  3. RIBAVIRIN [Concomitant]
     Route: 048
     Dates: start: 20120801
  4. PEGINTERFERON ALFA-2B [Concomitant]
     Indication: HEPATITIS C
     Route: 058
     Dates: start: 20120215
  5. RIBAVIRIN [Concomitant]
     Indication: HEPATITIS C
     Route: 048
     Dates: start: 20120215, end: 20120224
  6. RABEPRAZOLE SODIUM [Concomitant]
     Route: 048
  7. TELAVIC (TELAPREVIR) [Suspect]
     Route: 048
     Dates: start: 20120222, end: 20120509
  8. HIRUDOID [Concomitant]
     Route: 051
     Dates: start: 20120215
  9. RIBAVIRIN [Concomitant]
     Route: 048
     Dates: start: 20120225, end: 20120327
  10. TELAVIC (TELAPREVIR) [Suspect]
     Indication: HEPATITIS C
     Route: 048
     Dates: start: 20120215, end: 20120221
  11. RIBAVIRIN [Concomitant]
     Route: 048
     Dates: start: 20120404, end: 20120522
  12. RIBAVIRIN [Concomitant]
     Route: 048
     Dates: start: 20120613, end: 20120731
  13. RIBAVIRIN [Concomitant]
     Route: 048
     Dates: start: 20120328, end: 20120403

REACTIONS (4)
  - DECREASED APPETITE [None]
  - DIZZINESS [None]
  - PANCREATITIS [None]
  - ANAEMIA [None]
